FAERS Safety Report 22115602 (Version 3)
Quarter: 2023Q2

REPORT INFORMATION
  Report Type: Spontaneous
  Country: US (occurrence: US)
  Receive Date: 20230320
  Receipt Date: 20230511
  Transmission Date: 20230721
  Serious: Yes (Other)
  Sender: FDA-Public Use
  Company Number: US-ORGANON-O2303USA001551

PATIENT
  Age: 30 Year
  Sex: Female
  Weight: 92.517 kg

DRUGS (2)
  1. NEXPLANON [Suspect]
     Active Substance: ETONOGESTREL
     Dosage: ONE IMPLANT, EVERY THREE YEARS IN LEFT UPPER ARM
     Route: 058
     Dates: start: 20230116, end: 20230120
  2. NEXPLANON [Concomitant]
     Active Substance: ETONOGESTREL
     Dosage: 1 IMPLANT (3 YEARS OF USE )
     Route: 058
     Dates: start: 20200117, end: 20230116

REACTIONS (3)
  - Device expulsion [Recovered/Resolved]
  - Device breakage [Recovered/Resolved]
  - No adverse event [Unknown]

NARRATIVE: CASE EVENT DATE: 20230101
